FAERS Safety Report 8510856-9 (Version None)
Quarter: 2012Q3

REPORT INFORMATION
  Report Type: 
  Country: None (occurrence: None)
  Receive Date: 20120716
  Receipt Date: 20120703
  Transmission Date: 20120928
  Serious: Yes (Hospitalization, Other)
  Sender: FDA-Public Use
  Company Number: US-ELI_LILLY_AND_COMPANY-US201111008602

PATIENT
  Sex: Male

DRUGS (4)
  1. LANTUS [Concomitant]
     Dosage: 14 U, QD
  2. HUMALOG [Suspect]
     Dosage: UNK, PRN
     Dates: start: 19970101
  3. HUMALOG [Suspect]
     Indication: DIABETES MELLITUS
     Dosage: UNK, PRN
     Dates: start: 20060101
  4. PREDNISONE [Concomitant]
     Indication: MALIGNANT MELANOMA
     Dosage: UNK

REACTIONS (7)
  - BRAIN INJURY [None]
  - MEMORY IMPAIRMENT [None]
  - HYPOGLYCAEMIA UNAWARENESS [None]
  - BLOOD GLUCOSE DECREASED [None]
  - DRUG INEFFECTIVE [None]
  - RENAL ARTERY STENT PLACEMENT [None]
  - WRONG DRUG ADMINISTERED [None]
